FAERS Safety Report 8965780 (Version 2)
Quarter: 2013Q1

REPORT INFORMATION
  Report Type: Spontaneous
  Country: JP (occurrence: JP)
  Receive Date: 20121217
  Receipt Date: 20130305
  Transmission Date: 20140127
  Serious: Yes (Life-Threatening, Hospitalization)
  Sender: FDA-Public Use
  Company Number: JP-PFIZER INC-2012316958

PATIENT
  Age: 75 Year
  Sex: Male
  Weight: 47.2 kg

DRUGS (3)
  1. INLYTA [Suspect]
     Dosage: 6 MG, 2X/DAY
     Route: 048
     Dates: start: 20121004
  2. INLYTA [Interacting]
     Dosage: 10 MG, 2X/DAY
     Route: 048
     Dates: start: 20121011
  3. LOXONIN [Interacting]
     Dosage: UNK
     Dates: end: 20121120

REACTIONS (6)
  - Drug interaction [Unknown]
  - Duodenal ulcer [Recovering/Resolving]
  - Anaemia [Unknown]
  - Malaise [Unknown]
  - Stomatitis [Unknown]
  - Fatigue [Unknown]
